FAERS Safety Report 11418872 (Version 1)
Quarter: 2015Q3

REPORT INFORMATION
  Report Type: Spontaneous
  Country: US (occurrence: US)
  Receive Date: 20150826
  Receipt Date: 20150826
  Transmission Date: 20151125
  Serious: No
  Sender: FDA-Public Use
  Company Number: US-AMGEN-USASP2015086733

PATIENT
  Age: 64 Year
  Sex: Female

DRUGS (1)
  1. ENBREL [Suspect]
     Active Substance: ETANERCEPT
     Indication: PSORIATIC ARTHROPATHY
     Dosage: UNK UNK, UNK
     Route: 065
     Dates: start: 201503

REACTIONS (8)
  - Joint dislocation [Unknown]
  - Back disorder [Unknown]
  - Back pain [Unknown]
  - Depression [Unknown]
  - Foot deformity [Unknown]
  - Pain in extremity [Unknown]
  - Epicondylitis [Unknown]
  - Trigger finger [Unknown]

NARRATIVE: CASE EVENT DATE: 2015
